FAERS Safety Report 5759512-0 (Version None)
Quarter: 2008Q2

REPORT INFORMATION
  Report Type: 
  Country: None (occurrence: None)
  Receive Date: 20080604
  Receipt Date: 20080604
  Transmission Date: 20081010
  Serious: Yes (Life-Threatening, Hospitalization, Disabling)
  Sender: FDA-Public Use
  Company Number: None

PATIENT
  Age: 73 Year
  Sex: Male
  Weight: 66.6788 kg

DRUGS (1)
  1. DIGITEK, 0.25 MG DAILY BY MYLAN BERTEK (SUBSTITUTE FOR DIGOXIN) [Suspect]
     Indication: CARDIAC FAILURE
     Dosage: 0.25 MG DAILY BY MOUTH  SEE PAGES 5 + 6 FOR REPORT
     Route: 048
     Dates: start: 20070525, end: 20080408

REACTIONS (9)
  - APPARENT DEATH [None]
  - CARDIAC DISORDER [None]
  - CHEST DISCOMFORT [None]
  - DISORIENTATION [None]
  - DIZZINESS [None]
  - DYSPNOEA [None]
  - FATIGUE [None]
  - HYPOTENSION [None]
  - WEIGHT DECREASED [None]
